FAERS Safety Report 17895090 (Version 10)
Quarter: 2021Q4

REPORT INFORMATION
  Report Type: Spontaneous
  Country: US (occurrence: US)
  Receive Date: 20200615
  Receipt Date: 20211119
  Transmission Date: 20220303
  Serious: Yes (Other)
  Sender: FDA-Public Use
  Company Number: US-PFIZER INC-2020230064

PATIENT
  Age: 77 Year
  Sex: Female
  Weight: 54.88 kg

DRUGS (3)
  1. XELJANZ XR [Suspect]
     Active Substance: TOFACITINIB CITRATE
     Indication: Rheumatoid arthritis
     Dosage: 11 MG, DAILY
     Route: 048
  2. METHOTREXATE SODIUM [Suspect]
     Active Substance: METHOTREXATE SODIUM
     Indication: Rheumatoid arthritis
     Dosage: UNK
  3. RASUVO [Concomitant]
     Active Substance: METHOTREXATE SODIUM
     Dosage: 20 MG, WEEKLY
     Route: 058

REACTIONS (6)
  - Pneumonia [Recovered/Resolved]
  - Cataract [Unknown]
  - Pain [Unknown]
  - Memory impairment [Unknown]
  - Herpes zoster [Unknown]
  - Hand deformity [Unknown]

NARRATIVE: CASE EVENT DATE: 20200101
